FAERS Safety Report 9891920 (Version 1)
Quarter: 2014Q1

REPORT INFORMATION
  Report Type: Spontaneous
  Country: US (occurrence: None)
  Receive Date: 20140210
  Receipt Date: 20140210
  Transmission Date: 20141002
  Serious: Yes (Other)
  Sender: FDA-Public Use
  Company Number: 2014-00019

PATIENT
  Age: 34 Year
  Sex: Male

DRUGS (2)
  1. ZICAM COLD REMEDY ORAL KIT [Suspect]
     Indication: NASOPHARYNGITIS
     Route: 048
     Dates: start: 20130919, end: 20130921
  2. ZICAM COLD REMEDY ORAL MIST [Suspect]
     Indication: NASOPHARYNGITIS
     Route: 048
     Dates: start: 20140126, end: 20140127

REACTIONS (3)
  - Hypersensitivity [None]
  - Blister [None]
  - Dysphagia [None]
